FAERS Safety Report 11179758 (Version 1)
Quarter: 2015Q2

REPORT INFORMATION
  Report Type: Spontaneous
  Country: US (occurrence: None)
  Receive Date: 20150609
  Receipt Date: 20150609
  Transmission Date: 20150821
  Serious: Yes (Other)
  Sender: FDA-Public Use
  Company Number: None

PATIENT
  Age: 57 Year
  Sex: Male
  Weight: 68.04 kg

DRUGS (2)
  1. DEXILANT [Concomitant]
     Active Substance: DEXLANSOPRAZOLE
  2. LEVOFLOXACIN 500MG [Suspect]
     Active Substance: LEVOFLOXACIN

REACTIONS (4)
  - Tibia fracture [None]
  - Pathological fracture [None]
  - Pain in extremity [None]
  - Stress fracture [None]
